FAERS Safety Report 6454040-1 (Version None)
Quarter: 2009Q4

REPORT INFORMATION
  Report Type: 
  Country: None (occurrence: None)
  Receive Date: 20091124
  Receipt Date: 20091118
  Transmission Date: 20100525
  Serious: Yes (Hospitalization)
  Sender: FDA-Public Use
  Company Number: A0823969A

PATIENT
  Sex: Male

DRUGS (5)
  1. LAMICTAL [Suspect]
     Indication: DRUG USE FOR UNKNOWN INDICATION
     Dosage: 200MG FOUR TIMES PER DAY
  2. LAMICTAL [Suspect]
  3. FRISIUM [Concomitant]
  4. UNKNOWN [Concomitant]
  5. LYRICA [Concomitant]

REACTIONS (4)
  - ADVERSE DRUG REACTION [None]
  - ADVERSE EVENT [None]
  - MOOD SWINGS [None]
  - SURGERY [None]
